FAERS Safety Report 16225106 (Version 2)
Quarter: 2019Q2

REPORT INFORMATION
  Report Type: Report from Study
  Country: TW (occurrence: TW)
  Receive Date: 20190422
  Receipt Date: 20190529
  Transmission Date: 20190711
  Serious: Yes (Death)
  Sender: FDA-Public Use
  Company Number: TW-CELGENEUS-TWN-20190406063

PATIENT
  Age: 63 Year
  Sex: Male
  Weight: 66.6 kg

DRUGS (70)
  1. AZACITIDINE. [Suspect]
     Active Substance: AZACITIDINE
     Indication: ACUTE MYELOID LEUKAEMIA
     Route: 058
     Dates: start: 20190410, end: 20190416
  2. RAMELTEON [Concomitant]
     Active Substance: RAMELTEON
     Route: 048
     Dates: start: 20190405
  3. KCL [Concomitant]
     Active Substance: POTASSIUM CHLORIDE
     Route: 065
     Dates: start: 20190410
  4. BIOMYCIN [Concomitant]
     Indication: DERMATITIS BULLOUS
     Route: 065
     Dates: start: 20190402, end: 20190408
  5. METOCLOPRAMIDE. [Concomitant]
     Active Substance: METOCLOPRAMIDE
     Indication: DIARRHOEA
     Route: 065
     Dates: start: 20190409, end: 20190416
  6. HYDROCORTISONE SOD SUCCINATE [Concomitant]
     Indication: PROPHYLAXIS
     Route: 065
     Dates: start: 20190327, end: 20190327
  7. HYDROCORTISONE SOD SUCCINATE [Concomitant]
     Route: 065
     Dates: start: 20190410, end: 20190410
  8. HYDROCORTISONE SOD SUCCINATE [Concomitant]
     Route: 065
     Dates: start: 20190412, end: 20190412
  9. HYDROCORTISONE SOD SUCCINATE [Concomitant]
     Route: 065
     Dates: start: 20190415, end: 20190416
  10. ACETAMINOPHEN. [Concomitant]
     Active Substance: ACETAMINOPHEN
     Indication: LUNG INFECTION
     Route: 065
     Dates: start: 20190329, end: 20190416
  11. TAKEPRON [Concomitant]
     Active Substance: LANSOPRAZOLE
     Indication: GASTROOESOPHAGEAL REFLUX DISEASE
  12. FLUCONAZOLE. [Concomitant]
     Active Substance: FLUCONAZOLE
     Indication: LUNG INFECTION
     Route: 065
     Dates: start: 20190409, end: 20190416
  13. LACTULOSE. [Concomitant]
     Active Substance: LACTULOSE
     Indication: CONSTIPATION
     Dosage: 30 MILLILITER
     Route: 048
     Dates: start: 20190326, end: 20190328
  14. TAMSULOSIN D [Concomitant]
     Indication: BENIGN PROSTATIC HYPERPLASIA
     Route: 048
     Dates: start: 20190326, end: 20190328
  15. DIPHENHYDRAMINE. [Concomitant]
     Active Substance: DIPHENHYDRAMINE
     Route: 065
     Dates: start: 20190416, end: 20190416
  16. HEPARIN [Concomitant]
     Active Substance: HEPARIN SODIUM
     Indication: PROPHYLAXIS
     Route: 065
     Dates: start: 20190327, end: 20190327
  17. KCL [Concomitant]
     Active Substance: POTASSIUM CHLORIDE
     Indication: HYPOKALAEMIA
     Route: 065
     Dates: start: 20190329, end: 20190403
  18. CEFEPIME [Concomitant]
     Active Substance: CEFEPIME HYDROCHLORIDE
     Route: 065
     Dates: start: 20190415, end: 20190416
  19. DEFERASIROX. [Concomitant]
     Active Substance: DEFERASIROX
     Indication: PROPHYLAXIS
     Route: 065
     Dates: start: 20190411
  20. CONSLIFE [Concomitant]
     Indication: CONSTIPATION
     Dosage: 2 TABLET
     Route: 048
     Dates: start: 20190326, end: 20190328
  21. RAMELTEON [Concomitant]
     Active Substance: RAMELTEON
     Indication: INSOMNIA
     Route: 048
     Dates: start: 20190326, end: 20190328
  22. ENTECAVIR. [Concomitant]
     Active Substance: ENTECAVIR
     Route: 065
     Dates: start: 20190405
  23. METFORMIN [Concomitant]
     Active Substance: METFORMIN HYDROCHLORIDE
     Indication: DIABETES MELLITUS
     Route: 065
     Dates: start: 20190326, end: 20190402
  24. CORTISONE ACETATE. [Concomitant]
     Active Substance: CORTISONE ACETATE
     Route: 065
     Dates: start: 20190401, end: 20190417
  25. DIPHENHYDRAMINE. [Concomitant]
     Active Substance: DIPHENHYDRAMINE
     Route: 065
     Dates: start: 20190408, end: 20190408
  26. DIPHENHYDRAMINE. [Concomitant]
     Active Substance: DIPHENHYDRAMINE
     Route: 065
     Dates: start: 20190415, end: 20190415
  27. VANCOMYCIN [Concomitant]
     Active Substance: VANCOMYCIN
     Indication: DEVICE RELATED INFECTION
     Route: 065
     Dates: start: 20190401, end: 20190401
  28. PROCHLORPERAZINE. [Concomitant]
     Active Substance: PROCHLORPERAZINE
     Indication: ANTIEMETIC SUPPORTIVE CARE
     Route: 065
     Dates: start: 20190404, end: 20190409
  29. NYSTATIN. [Concomitant]
     Active Substance: NYSTATIN
     Indication: STOMATITIS
     Route: 065
     Dates: start: 20190408
  30. TRIAMCINOLONE IN ORBASE [Concomitant]
     Indication: STOMATITIS
     Route: 065
     Dates: start: 20190408
  31. ALBUMIN [Concomitant]
     Active Substance: ALBUMIN HUMAN
     Indication: PROPHYLAXIS
     Route: 065
     Dates: start: 20190416, end: 20190417
  32. LACTULOSE. [Concomitant]
     Active Substance: LACTULOSE
     Dosage: 30 MILLILITER
     Route: 048
     Dates: start: 20190411, end: 20190416
  33. TAMSULOSIN D [Concomitant]
     Route: 048
     Dates: start: 20190405
  34. DIPHENHYDRAMINE. [Concomitant]
     Active Substance: DIPHENHYDRAMINE
     Route: 065
     Dates: start: 20190401, end: 20190401
  35. LIDOCAINE HCL [Concomitant]
     Active Substance: LIDOCAINE HYDROCHLORIDE
     Indication: PROPHYLAXIS
     Route: 065
     Dates: start: 20190327, end: 20190327
  36. CRASHTONE [Concomitant]
     Indication: HYPOKALAEMIA
     Route: 065
     Dates: start: 20190404, end: 20190404
  37. GLUCOSE [Concomitant]
     Active Substance: DEXTROSE
     Indication: LUNG INFECTION
     Route: 065
     Dates: start: 20190416
  38. ISOSORBIDE DINITRATE. [Concomitant]
     Active Substance: ISOSORBIDE DINITRATE
     Indication: RESTRICTIVE CARDIOMYOPATHY
     Route: 065
     Dates: start: 20190416, end: 20190416
  39. METFORMIN [Concomitant]
     Active Substance: METFORMIN HYDROCHLORIDE
     Route: 065
     Dates: start: 20190402, end: 20190406
  40. DIPHENHYDRAMINE. [Concomitant]
     Active Substance: DIPHENHYDRAMINE
     Route: 065
     Dates: start: 20190329, end: 20190329
  41. HEPARIN [Concomitant]
     Active Substance: HEPARIN SODIUM
     Route: 065
     Dates: start: 20190412, end: 20190412
  42. HEPARIN [Concomitant]
     Active Substance: HEPARIN SODIUM
     Route: 065
     Dates: start: 20190415, end: 20190415
  43. CEFEPIME [Concomitant]
     Active Substance: CEFEPIME HYDROCHLORIDE
     Indication: LUNG INFECTION
     Route: 065
     Dates: start: 20190329, end: 20190409
  44. VANCOMYCIN [Concomitant]
     Active Substance: VANCOMYCIN
     Indication: INFECTION
     Route: 065
     Dates: start: 20190404, end: 20190404
  45. VANCOMYCIN [Concomitant]
     Active Substance: VANCOMYCIN
     Route: 065
     Dates: start: 20190407, end: 20190409
  46. TAKEPRON [Concomitant]
     Active Substance: LANSOPRAZOLE
     Indication: PROPHYLAXIS
     Route: 065
     Dates: start: 20190405
  47. PLATELETS [Concomitant]
     Active Substance: HUMAN PLATELET, ALLOGENIC
     Indication: PRODUCT USED FOR UNKNOWN INDICATION
     Dosage: 12 UNITS
     Route: 065
     Dates: start: 20190416
  48. TEARS NATURALE FREE [Concomitant]
     Active Substance: DEXTRAN 70\HYPROMELLOSE 2910 (4000 MPA.S)
     Indication: PROPHYLAXIS
     Route: 065
     Dates: start: 20190413
  49. FUROSEMIDE. [Concomitant]
     Active Substance: FUROSEMIDE
     Indication: PROPHYLAXIS
     Route: 065
     Dates: start: 20190416, end: 20190416
  50. LANSOPRAZOLE. [Concomitant]
     Active Substance: LANSOPRAZOLE
     Indication: PROPHYLAXIS
     Dosage: 30 MILLIGRAM
     Route: 048
     Dates: start: 20190326, end: 20190328
  51. ENTECAVIR. [Concomitant]
     Active Substance: ENTECAVIR
     Indication: PROPHYLAXIS
     Route: 065
     Dates: start: 20190326, end: 20190328
  52. DIPHENHYDRAMINE. [Concomitant]
     Active Substance: DIPHENHYDRAMINE
     Indication: PROPHYLAXIS
     Route: 065
     Dates: start: 20190327, end: 20190327
  53. DIPHENHYDRAMINE. [Concomitant]
     Active Substance: DIPHENHYDRAMINE
     Route: 065
     Dates: start: 20190410, end: 20190410
  54. DIPHENHYDRAMINE. [Concomitant]
     Active Substance: DIPHENHYDRAMINE
     Route: 065
     Dates: start: 20190412, end: 20190412
  55. HYDROCORTISONE SOD SUCCINATE [Concomitant]
     Route: 065
     Dates: start: 20190401, end: 20190401
  56. HEPARIN [Concomitant]
     Active Substance: HEPARIN SODIUM
     Route: 065
     Dates: start: 20190329, end: 20190329
  57. KCL [Concomitant]
     Active Substance: POTASSIUM CHLORIDE
     Route: 065
     Dates: start: 20190329, end: 20190403
  58. DEXTROMETHORPHAN SR [Concomitant]
     Indication: LUNG INFECTION
     Route: 065
     Dates: start: 20190329, end: 20190416
  59. ACYCLOVIR. [Concomitant]
     Active Substance: ACYCLOVIR
     Indication: DERMATITIS BULLOUS
     Route: 065
     Dates: start: 20190402, end: 20190406
  60. RED BLOOD CELLS [Concomitant]
     Active Substance: HUMAN RED BLOOD CELL
     Indication: PRODUCT USED FOR UNKNOWN INDICATION
     Dosage: 2 UNITS
     Route: 065
     Dates: start: 20190416
  61. DIOCTAHEDRAL SMECTITE [Concomitant]
     Indication: DIABETES MELLITUS
     Route: 065
     Dates: start: 20190406, end: 20190410
  62. ONDANSETRON [Concomitant]
     Active Substance: ONDANSETRON
     Indication: PROPHYLAXIS
     Route: 065
     Dates: start: 20190410, end: 20190416
  63. CORTISONE ACETATE. [Concomitant]
     Active Substance: CORTISONE ACETATE
     Indication: GRAFT VERSUS HOST DISEASE
     Route: 065
     Dates: start: 20190326, end: 20190331
  64. DIPHENHYDRAMINE. [Concomitant]
     Active Substance: DIPHENHYDRAMINE
     Route: 065
     Dates: start: 20190403, end: 20190403
  65. DIPHENHYDRAMINE. [Concomitant]
     Active Substance: DIPHENHYDRAMINE
     Route: 065
     Dates: start: 20190405, end: 20190405
  66. HYDROCORTISONE SOD SUCCINATE [Concomitant]
     Route: 065
     Dates: start: 20190329, end: 20190329
  67. HYDROCORTISONE SOD SUCCINATE [Concomitant]
     Route: 065
     Dates: start: 20190405, end: 20190405
  68. HYDROCORTISONE SOD SUCCINATE [Concomitant]
     Route: 065
     Dates: start: 20190408, end: 20190408
  69. VANCOMYCIN [Concomitant]
     Active Substance: VANCOMYCIN
     Route: 065
     Dates: start: 20190416, end: 20190417
  70. SPIRONOLACTONE. [Concomitant]
     Active Substance: SPIRONOLACTONE
     Indication: HYPOKALAEMIA
     Route: 065
     Dates: start: 20190403, end: 20190408

REACTIONS (3)
  - Lung infection [Fatal]
  - Acute respiratory failure [Fatal]
  - Sepsis [Fatal]

NARRATIVE: CASE EVENT DATE: 20190415
